FAERS Safety Report 17240158 (Version 2)
Quarter: 2020Q2

REPORT INFORMATION
  Report Type: Spontaneous
  Country: US (occurrence: US)
  Receive Date: 20200107
  Receipt Date: 20200507
  Transmission Date: 20200713
  Serious: Yes (Death, Other)
  Sender: FDA-Public Use
  Company Number: US-AUROBINDO-AUR-APL-2019-108185

PATIENT
  Age: 17 Week
  Sex: Female

DRUGS (7)
  1. NADOLOL. [Suspect]
     Active Substance: NADOLOL
     Dosage: 2 MILLIGRAM/KILOGRAM, ONCE A DAY
     Route: 048
  2. NADOLOL. [Suspect]
     Active Substance: NADOLOL
     Dosage: 5.5 MILLIGRAM, TWO TIMES A DAY
     Route: 048
     Dates: start: 20151123
  3. NADOLOL. [Suspect]
     Active Substance: NADOLOL
     Dosage: 2.6 MILLIGRAM, TWO TIMES A DAY
     Route: 048
     Dates: start: 20151025
  4. NADOLOL. [Suspect]
     Active Substance: NADOLOL
     Indication: INFANTILE HAEMANGIOMA
     Dosage: 0.25 MILLIGRAM/KILOGRAM, ONCE A DAY
     Route: 048
  5. NADOLOL. [Suspect]
     Active Substance: NADOLOL
     Dosage: 3.9 MILLIGRAM, TWO TIMES A DAY
     Route: 048
     Dates: start: 20151029
  6. NADOLOL. [Suspect]
     Active Substance: NADOLOL
     Dosage: 1.3 MILLIGRAM, TWO TIMES A DAY
     Route: 048
     Dates: start: 20151021
  7. NADOLOL. [Suspect]
     Active Substance: NADOLOL
     Dosage: 5 MILLIGRAM, TWO TIMES A DAY
     Route: 048
     Dates: start: 20151102

REACTIONS (4)
  - Death [Fatal]
  - Drug level increased [Fatal]
  - Toxicity to various agents [Fatal]
  - Off label use [Unknown]
